FAERS Safety Report 20473020 (Version 2)
Quarter: 2022Q1

REPORT INFORMATION
  Report Type: Spontaneous
  Country: DE (occurrence: DE)
  Receive Date: 20220215
  Receipt Date: 20220215
  Transmission Date: 20220423
  Serious: No
  Sender: FDA-Public Use
  Company Number: DE-ALKEM LABORATORIES LIMITED-DE-ALKEM-2021-07475

PATIENT
  Age: 76 Year
  Sex: Male
  Weight: 73 kg

DRUGS (3)
  1. EZETIMIBE [Suspect]
     Active Substance: EZETIMIBE
     Indication: Hyperlipidaemia
     Dosage: 10 MILLIGRAM, QD
     Route: 048
     Dates: start: 202011, end: 202103
  2. BEMPEDOIC ACID [Suspect]
     Active Substance: BEMPEDOIC ACID
     Indication: Hyperlipidaemia
     Dosage: 1 DF, QD
     Route: 048
     Dates: start: 202102, end: 202103
  3. FLUVASTATIN [Suspect]
     Active Substance: FLUVASTATIN SODIUM
     Indication: Hyperlipidaemia
     Dosage: 20 MILLIGRAM, QD
     Route: 048
     Dates: start: 202110

REACTIONS (7)
  - Pruritus [Recovered/Resolved]
  - Bone pain [Recovered/Resolved]
  - Hot flush [Recovered/Resolved]
  - Myalgia [Recovered/Resolved]
  - Sensory level abnormal [Recovered/Resolved]
  - Alopecia [Recovered/Resolved]
  - Eczema [Recovered/Resolved]
